FAERS Safety Report 4639085-6 (Version None)
Quarter: 2005Q2

REPORT INFORMATION
  Report Type: 
  Country: None (occurrence: None)
  Receive Date: 20050418
  Receipt Date: 20050406
  Transmission Date: 20051028
  Serious: Yes (Life-Threatening, Hospitalization, Other)
  Sender: FDA-Public Use
  Company Number: 2005042046

PATIENT
  Age: 15 Year
  Sex: Male
  Weight: 58 kg

DRUGS (12)
  1. DIFLUCAN [Suspect]
     Indication: FEBRILE NEUTROPENIA
     Dosage: 50 MG (50 MG, QD), INTRAVENOUS
     Route: 042
     Dates: start: 20040216, end: 20040218
  2. CEFOTIAM (CEFOTIAM) [Suspect]
     Indication: ILL-DEFINED DISORDER
     Dosage: INTRAVENOUS
     Route: 042
     Dates: end: 20040304
  3. MICAFUNGIN (MICAFUNGIN) [Suspect]
     Indication: FEBRILE NEUTROPENIA
     Dosage: 100 MG (100 MG, QD), INTRAVENOUS
     Route: 042
     Dates: start: 20040219, end: 20040303
  4. PRIMAXIN [Suspect]
     Indication: SEPSIS
     Dosage: 2 GRAM (1 GRAM, BID), INTRAVENOUS
     Route: 042
     Dates: start: 20040221, end: 20040303
  5. AMIKACIN [Concomitant]
  6. CYTARABINE [Concomitant]
  7. ETOPOSIDE [Concomitant]
  8. CEFOTIAM HYDROCHLORIDE [Concomitant]
  9. MINOCYCLINE HYDROCHLORIDE [Concomitant]
  10. FILGRASTIM (FILGRASTIM) [Concomitant]
  11. IMMUNE GLOBULIN INTRAVENOUS (HUMAN) [Concomitant]
  12. CEFTAZIDIME SODIUM [Concomitant]

REACTIONS (16)
  - ASPERGILLOSIS [None]
  - BLOOD BILIRUBIN INCREASED [None]
  - BLOOD LACTATE DEHYDROGENASE INCREASED [None]
  - FEBRILE NEUTROPENIA [None]
  - FUNGAL INFECTION [None]
  - GENERALISED OEDEMA [None]
  - HAEMOLYTIC URAEMIC SYNDROME [None]
  - HYPOPROTEINAEMIA [None]
  - NEPHROPATHY TOXIC [None]
  - PERIPHERAL CIRCULATORY FAILURE [None]
  - PLATELET COUNT DECREASED [None]
  - PNEUMONIA [None]
  - PSEUDOMONAS INFECTION [None]
  - RENAL IMPAIRMENT [None]
  - SEPSIS [None]
  - THROMBOTIC MICROANGIOPATHY [None]
